FAERS Safety Report 8539883-2 (Version None)
Quarter: 2012Q2

REPORT INFORMATION
  Report Type: 
  Country: None (occurrence: None)
  Receive Date: 20120412
  Receipt Date: 20090107
  Transmission Date: 20120825
  Serious: Yes (Disabling)
  Sender: FDA-Public Use
  Company Number: PHEH2004US02126

PATIENT
  Age: 67 Year
  Sex: Female

DRUGS (11)
  1. TOPROL-XL [Concomitant]
  2. AREDIA [Suspect]
     Indication: MULTIPLE MYELOMA
     Dosage: 90 MG, QMO, INTRAVENOUS
     Route: 042
     Dates: start: 19970601, end: 20041001
  3. COZAAR [Concomitant]
  4. SYNTHROID [Concomitant]
  5. PROTONIX [Concomitant]
  6. CATAPRES [Concomitant]
  7. THALIDOMIDE [Concomitant]
  8. MELPHALAN HYDROCHLORIDE [Concomitant]
  9. FUROSEMIDE [Concomitant]
  10. NORVASC [Concomitant]
  11. PREDNISONE TAB [Concomitant]

REACTIONS (9)
  - JOINT DISLOCATION [None]
  - SOFT TISSUE DISORDER [None]
  - PURULENT DISCHARGE [None]
  - ORAL SURGERY [None]
  - OSTEONECROSIS [None]
  - TOOTH ABSCESS [None]
  - BONE DISORDER [None]
  - MANDIBULAR PROSTHESIS USER [None]
  - DEVICE FAILURE [None]
